FAERS Safety Report 7388453-0 (Version None)
Quarter: 2011Q2

REPORT INFORMATION
  Report Type: 
  Country: None (occurrence: None)
  Receive Date: 20110401
  Receipt Date: 20110330
  Transmission Date: 20111010
  Serious: Yes (Other)
  Sender: FDA-Public Use
  Company Number: ZA-PFIZER INC-2011071396

PATIENT
  Age: 6 Month
  Sex: Female

DRUGS (3)
  1. CYTOTEC [Suspect]
     Indication: INDUCED LABOUR
     Dosage: UNK, 4 PILLS GIVEN 20MIN APART
     Route: 064
     Dates: start: 20100208, end: 20100208
  2. SYNTOCINON [Concomitant]
  3. PETHIDINE [Concomitant]

REACTIONS (3)
  - CONVULSION [None]
  - DRUG EXPOSURE DURING PREGNANCY [None]
  - CEREBRAL HAEMORRHAGE [None]
